FAERS Safety Report 25246090 (Version 1)
Quarter: 2025Q2

REPORT INFORMATION
  Report Type: Spontaneous
  Country: CN (occurrence: CN)
  Receive Date: 20250428
  Receipt Date: 20250428
  Transmission Date: 20250717
  Serious: Yes (Other)
  Sender: PFIZER
  Company Number: CN-PFIZER INC-PV202500048839

PATIENT
  Age: 16 Year
  Sex: Male

DRUGS (3)
  1. CYTARABINE [Suspect]
     Active Substance: CYTARABINE
     Indication: Acute lymphocytic leukaemia
     Dosage: 180 MG, Q12H
     Route: 041
     Dates: start: 20250408, end: 20250414
  2. DAUNORUBICIN HYDROCHLORIDE [Suspect]
     Active Substance: DAUNORUBICIN HYDROCHLORIDE
     Indication: Acute lymphocytic leukaemia
     Dosage: 90 MG, ALTERNATE DAY
     Route: 041
     Dates: start: 20250408, end: 20250413
  3. ETOPOSIDE [Suspect]
     Active Substance: ETOPOSIDE
     Indication: Acute lymphocytic leukaemia
     Dosage: 0.18 G, 1X/DAY
     Route: 041
     Dates: start: 20250408, end: 20250412

REACTIONS (3)
  - Rash pruritic [Recovering/Resolving]
  - Skin temperature increased [Unknown]
  - Flushing [Unknown]

NARRATIVE: CASE EVENT DATE: 20250412
